FAERS Safety Report 14234338 (Version 2)
Quarter: 2017Q4

REPORT INFORMATION
  Report Type: Report from Study
  Country: FR (occurrence: FR)
  Receive Date: 20171129
  Receipt Date: 20171219
  Transmission Date: 20180321
  Serious: Yes (Hospitalization)
  Sender: FDA-Public Use
  Company Number: FR-ROCHE-1955176

PATIENT
  Age: 60 Year
  Sex: Male
  Weight: 73 kg

DRUGS (4)
  1. OBINUTUZUMAB. [Suspect]
     Active Substance: OBINUTUZUMAB
     Indication: MANTLE CELL LYMPHOMA
     Dosage: LAST DOSE PRIOR TO SAE: 19/JUN/2017, CYCLE 1
     Route: 042
     Dates: start: 20170612
  2. CISPLATIN. [Concomitant]
     Active Substance: CISPLATIN
     Indication: LYMPHOMA
     Route: 065
     Dates: start: 20170612
  3. CYTARABINE. [Concomitant]
     Active Substance: CYTARABINE
     Indication: LYMPHOMA
     Route: 065
     Dates: start: 20170612
  4. DEXAMETHASONE. [Concomitant]
     Active Substance: DEXAMETHASONE
     Indication: LYMPHOMA
     Route: 065
     Dates: start: 20170612

REACTIONS (1)
  - Febrile bone marrow aplasia [Recovered/Resolved]

NARRATIVE: CASE EVENT DATE: 20170621
